FAERS Safety Report 25375402 (Version 2)
Quarter: 2025Q2

REPORT INFORMATION
  Report Type: Spontaneous
  Country: US (occurrence: US)
  Receive Date: 20250529
  Receipt Date: 20250630
  Transmission Date: 20250717
  Serious: No
  Sender: INCYTE
  Company Number: US-EVENT-002778

PATIENT
  Age: 72 Year

DRUGS (4)
  1. OPZELURA [Suspect]
     Active Substance: RUXOLITINIB PHOSPHATE
     Indication: Notalgia paraesthetica
     Dosage: 1.5 PERCENT, BID FOR 6 WEEKS
     Route: 065
  2. CAMPHOR [Concomitant]
     Active Substance: CAMPHOR
     Indication: Notalgia paraesthetica
     Route: 065
  3. MENTHOL [Concomitant]
     Active Substance: MENTHOL
     Indication: Notalgia paraesthetica
     Route: 065
  4. AMMONIUM LACTATE [Concomitant]
     Active Substance: AMMONIUM LACTATE
     Indication: Notalgia paraesthetica
     Route: 065

REACTIONS (3)
  - Notalgia paraesthetica [Unknown]
  - Drug effective for unapproved indication [Unknown]
  - Off label use [Unknown]
